FAERS Safety Report 13575557 (Version 1)
Quarter: 2017Q2

REPORT INFORMATION
  Report Type: Spontaneous
  Country: US (occurrence: US)
  Receive Date: 20170524
  Receipt Date: 20170524
  Transmission Date: 20170830
  Serious: No
  Sender: FDA-Public Use
  Company Number: US-TEVA-736407ACC

PATIENT
  Age: 60 Year
  Sex: Female

DRUGS (1)
  1. ESZOPICLONE. [Suspect]
     Active Substance: ESZOPICLONE
     Indication: INSOMNIA
     Dosage: DOSE: 3 MG HS

REACTIONS (2)
  - Product quality issue [Unknown]
  - Sleep disorder [Unknown]

NARRATIVE: CASE EVENT DATE: 201612
